FAERS Safety Report 18135599 (Version 1)
Quarter: 2020Q3

REPORT INFORMATION
  Report Type: Report from Study
  Country: US (occurrence: US)
  Receive Date: 20200811
  Receipt Date: 20200811
  Transmission Date: 20201103
  Serious: Yes (Other)
  Sender: FDA-Public Use
  Company Number: US-BAYER-2020-165543

PATIENT
  Age: 64 Year
  Sex: Female

DRUGS (5)
  1. ASPIRIN (E.C.) [Concomitant]
     Active Substance: ASPIRIN
  2. PRAMIPEXOLE DIHYDROCHLORIDE. [Concomitant]
     Active Substance: PRAMIPEXOLE DIHYDROCHLORIDE
  3. MULTIVITAMINS [VITAMINS NOS] [Concomitant]
     Active Substance: VITAMINS
  4. BETASERON [Suspect]
     Active Substance: INTERFERON BETA-1B
     Indication: POLYNEUROPATHY
     Dosage: 0.25 MG
     Dates: start: 20190912
  5. VITAMIN D3 [Concomitant]
     Active Substance: CHOLECALCIFEROL

REACTIONS (3)
  - Off label use [None]
  - Product use in unapproved indication [None]
  - Condition aggravated [Not Recovered/Not Resolved]
